FAERS Safety Report 7727809-0 (Version None)
Quarter: 2011Q3

REPORT INFORMATION
  Report Type: 
  Country: None (occurrence: None)
  Receive Date: 20110905
  Receipt Date: 20110824
  Transmission Date: 20111222
  Serious: Yes (Other)
  Sender: FDA-Public Use
  Company Number: IT-BIOGENIDEC-2011BI019247

PATIENT
  Age: 25 Year
  Sex: Male

DRUGS (2)
  1. GLATIRAMER ACETATE [Concomitant]
     Indication: RELAPSING-REMITTING MULTIPLE SCLEROSIS
  2. TYSABRI [Suspect]
     Indication: RELAPSING-REMITTING MULTIPLE SCLEROSIS
     Route: 042
     Dates: start: 20100603, end: 20100916

REACTIONS (6)
  - PALLOR [None]
  - NUCLEAR MAGNETIC RESONANCE IMAGING ABNORMAL [None]
  - DIZZINESS [None]
  - HYPOTENSION [None]
  - PARAESTHESIA [None]
  - BRADYCARDIA [None]
